FAERS Safety Report 7495101-8 (Version None)
Quarter: 2011Q2

REPORT INFORMATION
  Report Type: 
  Country: None (occurrence: None)
  Receive Date: 20110520
  Receipt Date: 20110512
  Transmission Date: 20111010
  Serious: Yes (Hospitalization, Other)
  Sender: FDA-Public Use
  Company Number: DE-ELI_LILLY_AND_COMPANY-DE201105003202

PATIENT
  Sex: Female

DRUGS (5)
  1. FORTEO [Suspect]
     Indication: OSTEOPOROSIS
     Dosage: UNK, QD
     Route: 058
     Dates: start: 20100210
  2. TOVIAZ [Concomitant]
     Dosage: UNK
     Route: 065
  3. MIRTAZAPIN [Concomitant]
     Dosage: UNK
     Route: 065
  4. ZYPREXA [Concomitant]
     Dosage: UNK
     Route: 065
  5. LEVODOPA [Concomitant]
     Dosage: UNK
     Route: 065

REACTIONS (3)
  - ARTHRALGIA [None]
  - LOWER LIMB FRACTURE [None]
  - OEDEMA PERIPHERAL [None]
